FAERS Safety Report 4830548-7 (Version None)
Quarter: 2005Q4

REPORT INFORMATION
  Report Type: 
  Country: None (occurrence: None)
  Receive Date: 20051115
  Receipt Date: 20051104
  Transmission Date: 20060501
  Serious: Yes (Other)
  Sender: FDA-Public Use
  Company Number: 2004032509

PATIENT
  Age: 45 Year
  Sex: Female

DRUGS (13)
  1. ZOLOFT [Suspect]
     Indication: DEPRESSION
     Dosage: 100 MG (100 MG, 1 IN 1 D); ORAL
     Route: 048
     Dates: start: 20030101
  2. GEODON [Suspect]
     Indication: MOOD SWINGS
     Dosage: 80 MG (80 MG, 1 IN 1 D); UNKNOWN
     Dates: start: 20050901, end: 20050101
  3. DEXAMFETAMINE (DEXAMFETAMINE) [Suspect]
     Indication: ILL-DEFINED DISORDER
  4. ABILIFY [Suspect]
     Indication: ILL-DEFINED DISORDER
     Dates: start: 20050101, end: 20050101
  5. RISPERDALE (RISPERIDONE) [Suspect]
     Indication: ILL-DEFINED DISORDER
     Dates: start: 20050101, end: 20050101
  6. CLONAZEPAM [Concomitant]
  7. LEVOXYL [Concomitant]
  8. MULTI-VITAMINS [Concomitant]
  9. ASCORBIC ACID [Concomitant]
  10. CALCIUM GLUCONATE [Concomitant]
  11. VITAMIN B COMPLEX CAP [Concomitant]
  12. HYDROXYZINE [Concomitant]
  13. BENADRYL [Concomitant]

REACTIONS (27)
  - AGGRESSION [None]
  - CHEILITIS [None]
  - CHEST PAIN [None]
  - CONDITION AGGRAVATED [None]
  - COUGH [None]
  - DIARRHOEA [None]
  - DIZZINESS [None]
  - DRUG INTERACTION [None]
  - FEELING ABNORMAL [None]
  - FEELING DRUNK [None]
  - FORMICATION [None]
  - HYPERTENSION [None]
  - HYPOTHYROIDISM [None]
  - NAUSEA [None]
  - OBSESSIVE-COMPULSIVE DISORDER [None]
  - PALPITATIONS [None]
  - PANIC REACTION [None]
  - PARANOIA [None]
  - RASH [None]
  - RESTLESSNESS [None]
  - RHINORRHOEA [None]
  - SEROTONIN SYNDROME [None]
  - SOMNOLENCE [None]
  - TUNNEL VISION [None]
  - VERTIGO [None]
  - VOMITING [None]
  - WEIGHT INCREASED [None]
